FAERS Safety Report 17774075 (Version 7)
Quarter: 2020Q2

REPORT INFORMATION
  Report Type: Spontaneous
  Country: ES (occurrence: ES)
  Receive Date: 20200513
  Receipt Date: 20200623
  Transmission Date: 20200714
  Serious: Yes (Hospitalization)
  Sender: FDA-Public Use
  Company Number: ES-SUN PHARMACEUTICAL INDUSTRIES LTD-2020RR-246925

PATIENT
  Age: 46 Year
  Sex: Female
  Weight: 63.6 kg

DRUGS (17)
  1. FORTASEC [Suspect]
     Active Substance: LOPERAMIDE HYDROCHLORIDE
     Indication: DIARRHOEA
     Dosage: UNK ()
     Route: 065
     Dates: start: 20200128
  2. DIPYRONE [Suspect]
     Active Substance: DIPYRONE
     Indication: PRODUCT USED FOR UNKNOWN INDICATION
     Dosage: UNK ()
     Route: 030
  3. JINARC [Suspect]
     Active Substance: TOLVAPTAN
     Indication: CONGENITAL CYSTIC KIDNEY DISEASE
     Dosage: UNK ()
     Route: 065
  4. JINARC [Suspect]
     Active Substance: TOLVAPTAN
     Dosage: 120 MG, QD
     Route: 065
     Dates: start: 201903, end: 20200115
  5. REDOXON (ASCORBIC ACID) [Suspect]
     Active Substance: ASCORBIC ACID
     Indication: PRODUCT USED FOR UNKNOWN INDICATION
     Dosage: UNK (FOR 1 DAY) ()
     Route: 065
     Dates: start: 20200128
  6. ROBAXIN [Suspect]
     Active Substance: METHOCARBAMOL
     Indication: MUSCLE SPASMS
     Dosage: TAKEN ON CERTAIN OCCASIONS ()
     Route: 065
     Dates: start: 20191122
  7. TRAMADOL. [Suspect]
     Active Substance: TRAMADOL
     Dosage: UNK
     Route: 065
     Dates: start: 201912
  8. EBASTINE [Suspect]
     Active Substance: EBASTINE
     Indication: INFLUENZA
     Dosage: UNK ()
     Route: 065
     Dates: start: 20200210
  9. IXIA [Suspect]
     Active Substance: OLMESARTAN MEDOXOMIL
     Indication: PRODUCT USED FOR UNKNOWN INDICATION
     Dosage: UNK ()
     Route: 065
     Dates: start: 20190114
  10. PARACETAMOL [Suspect]
     Active Substance: ACETAMINOPHEN
     Indication: ABDOMINAL PAIN UPPER
     Dosage: UNK
     Route: 065
     Dates: start: 201912
  11. METAMIZOLE [Suspect]
     Active Substance: METAMIZOLE
     Indication: PYREXIA
     Dosage: UNK
     Route: 030
  12. PARACETAMOL [Suspect]
     Active Substance: ACETAMINOPHEN
     Indication: PYREXIA
     Dosage: 1 G, Q8H
     Route: 065
     Dates: start: 20200128
  13. TRAMADOL. [Suspect]
     Active Substance: TRAMADOL
     Indication: INFLUENZA
     Dosage: UNK
     Route: 065
  14. ANTIHISTAMINICO [Suspect]
     Active Substance: CHLORPHENIRAMINE MALEATE
     Indication: PRODUCT USED FOR UNKNOWN INDICATION
     Dosage: UNK
     Route: 005
     Dates: start: 20200128
  15. ESOMEPRAZOLE. [Suspect]
     Active Substance: ESOMEPRAZOLE MAGNESIUM
     Indication: OESOPHAGITIS
     Dosage: SPORADICALLY TAKEN, ALTHOUGH IT WAS TAKEN IN THE LAST 48 H. ()
     Route: 065
     Dates: start: 20191216
  16. CARDURAN [Suspect]
     Active Substance: DOXAZOSIN MESYLATE
     Indication: HYPERTENSION
     Dosage: UNK ()
     Route: 065
     Dates: start: 20180706
  17. MAXALT [Suspect]
     Active Substance: RIZATRIPTAN BENZOATE
     Indication: PRODUCT USED FOR UNKNOWN INDICATION
     Dosage: RARELY TAKEN ()
     Route: 065
     Dates: start: 20180706

REACTIONS (13)
  - Oesophagitis [Recovered/Resolved]
  - Gallbladder polyp [Unknown]
  - Aspartate aminotransferase increased [Recovered/Resolved]
  - Cough [Recovered/Resolved]
  - Diarrhoea [Recovered/Resolved]
  - Abdominal pain upper [Recovered/Resolved]
  - Influenza [Recovered/Resolved]
  - Alanine aminotransferase increased [Recovered/Resolved]
  - Rhinorrhoea [Recovered/Resolved]
  - Vomiting [Recovered/Resolved]
  - Liver disorder [Recovered/Resolved]
  - Muscle spasms [Recovered/Resolved]
  - Pyrexia [Recovered/Resolved]

NARRATIVE: CASE EVENT DATE: 20191122
